FAERS Safety Report 14318513 (Version 1)
Quarter: 2017Q4

REPORT INFORMATION
  Report Type: Spontaneous
  Country: GR (occurrence: GR)
  Receive Date: 20171222
  Receipt Date: 20171222
  Transmission Date: 20180321
  Serious: Yes (Other)
  Sender: FDA-Public Use
  Company Number: GR-ASTRAZENECA-2017SF28262

PATIENT
  Age: 62 Year
  Sex: Female

DRUGS (18)
  1. FULVESTRANT. [Suspect]
     Active Substance: FULVESTRANT
     Indication: BREAST CANCER METASTATIC
     Dosage: UNKNOWN
     Route: 030
     Dates: start: 2009
  2. DOXORUBICIN HYDROCHLORIDE. [Suspect]
     Active Substance: DOXORUBICIN HYDROCHLORIDE
     Indication: BREAST CANCER METASTATIC
     Dosage: UNKNOWN
     Route: 065
     Dates: start: 2009
  3. DOCETAXEL. [Suspect]
     Active Substance: DOCETAXEL
     Indication: BREAST CANCER METASTATIC
     Dosage: UNKNOWN
     Route: 065
     Dates: start: 2009
  4. LAPATINIB [Suspect]
     Active Substance: LAPATINIB
     Indication: BREAST CANCER METASTATIC
     Dosage: UNKNOWN
     Route: 065
     Dates: start: 2009
  5. TAMOXIFEN CITRATE. [Suspect]
     Active Substance: TAMOXIFEN CITRATE
     Indication: BREAST CANCER METASTATIC
     Dosage: UNKNOWN
     Route: 048
     Dates: start: 2009
  6. FLUOROURACIL. [Suspect]
     Active Substance: FLUOROURACIL
     Indication: BREAST CANCER METASTATIC
     Dosage: UNKNOWN
     Route: 065
     Dates: start: 2006
  7. EXEMESTANE. [Suspect]
     Active Substance: EXEMESTANE
     Indication: BREAST CANCER METASTATIC
     Dosage: UNKNOWN
     Route: 065
     Dates: start: 2009
  8. GEMCITABINE HYDROCHLORIDE. [Suspect]
     Active Substance: GEMCITABINE HYDROCHLORIDE
     Indication: BREAST CANCER METASTATIC
     Dosage: UNKNOWN
     Route: 065
     Dates: start: 2009
  9. PACLITAXEL. [Suspect]
     Active Substance: PACLITAXEL
     Indication: BREAST CANCER METASTATIC
     Dosage: UNKNOWN
     Route: 065
     Dates: start: 2006
  10. EVEROLIMUS. [Suspect]
     Active Substance: EVEROLIMUS
     Indication: BREAST CANCER METASTATIC
     Dosage: UNKNOWN
     Route: 065
     Dates: start: 2009
  11. TRASTUZUMAB. [Suspect]
     Active Substance: TRASTUZUMAB
     Indication: BREAST CANCER METASTATIC
     Dosage: UNKNOWN
     Route: 065
     Dates: start: 2009
  12. ERIBULIN [Suspect]
     Active Substance: ERIBULIN
     Indication: BREAST CANCER METASTATIC
     Dosage: UNKNOWN
     Route: 041
     Dates: start: 2009
  13. VINORELBINE [Suspect]
     Active Substance: VINORELBINE\VINORELBINE TARTRATE
     Indication: BREAST CANCER METASTATIC
     Dosage: UNKNOWN
     Route: 065
     Dates: start: 2009
  14. CARBOPLATIN. [Suspect]
     Active Substance: CARBOPLATIN
     Indication: BREAST CANCER METASTATIC
     Dosage: UNKNOWN
     Route: 065
     Dates: start: 2009
  15. CAPECITABINE. [Suspect]
     Active Substance: CAPECITABINE
     Indication: BREAST CANCER METASTATIC
     Dosage: UNKNOWN
     Route: 065
     Dates: start: 2009
  16. METHOTREXATE SODIUM. [Suspect]
     Active Substance: METHOTREXATE SODIUM
     Indication: BREAST CANCER METASTATIC
     Dosage: UNKNOWN
     Route: 065
     Dates: start: 2006
  17. TRASTUZUMAB. [Suspect]
     Active Substance: TRASTUZUMAB
     Indication: BREAST CANCER METASTATIC
     Dosage: UNKNOWN
     Route: 065
     Dates: start: 2009
  18. CYCLOPHOSPHAMIDE. [Suspect]
     Active Substance: CYCLOPHOSPHAMIDE
     Indication: BREAST CANCER METASTATIC
     Dosage: UNKNOWN
     Route: 065
     Dates: start: 2006

REACTIONS (1)
  - Malignant neoplasm progression [Unknown]
